FAERS Safety Report 9643133 (Version 1)
Quarter: 2013Q4

REPORT INFORMATION
  Report Type: Spontaneous
  Country: US (occurrence: US)
  Receive Date: 20131024
  Receipt Date: 20131024
  Transmission Date: 20140711
  Serious: Yes (Hospitalization)
  Sender: FDA-Public Use
  Company Number: US-BAYER-2013-127853

PATIENT
  Age: 46 Year
  Sex: Female

DRUGS (11)
  1. YAZ [Suspect]
  2. GIANVI [Suspect]
  3. AMBIEN [Concomitant]
     Dosage: 10 MG, HS
  4. CARAFATE [Concomitant]
  5. VITAMIN D [Concomitant]
  6. AUGMENTIN [Concomitant]
     Indication: MASTOIDITIS
     Dosage: 875-125 MG
  7. MAXALT [Concomitant]
     Indication: MIGRAINE
     Dosage: AS NEEDED
  8. LIPITOR [Concomitant]
     Indication: HYPERTRIGLYCERIDAEMIA
  9. METOPROLOL [Concomitant]
  10. INVANZ [Concomitant]
  11. ZOSYN [Concomitant]

REACTIONS (2)
  - Transverse sinus thrombosis [None]
  - Cerebral infarction [None]
